FAERS Safety Report 9508263 (Version 1)
Quarter: 2013Q3

REPORT INFORMATION
  Report Type: Spontaneous
  Country: EG (occurrence: None)
  Receive Date: 20130905
  Receipt Date: 20130905
  Transmission Date: 20140515
  Serious: Yes (Other)
  Sender: FDA-Public Use
  Company Number: FK201303865

PATIENT
  Age: 6 Year
  Sex: Female

DRUGS (1)
  1. VANCOMYCIN [Suspect]
     Indication: BRONCHOPNEUMONIA
     Route: 042

REACTIONS (4)
  - Red man syndrome [None]
  - Wrong technique in drug usage process [None]
  - Incorrect drug administration rate [None]
  - Bronchopneumonia [None]
